FAERS Safety Report 16353102 (Version 2)
Quarter: 2019Q3

REPORT INFORMATION
  Report Type: Spontaneous
  Country: US (occurrence: US)
  Receive Date: 20190524
  Receipt Date: 20190827
  Transmission Date: 20191004
  Serious: No
  Sender: FDA-Public Use
  Company Number: US-PFIZER INC-2019219089

PATIENT
  Age: 70 Year
  Sex: Female

DRUGS (2)
  1. LYRICA [Suspect]
     Active Substance: PREGABALIN
     Indication: FIBROMYALGIA
     Dosage: 50 MG, DAILY (50 MG IN THE EVENING)
  2. LYRICA [Suspect]
     Active Substance: PREGABALIN
     Dosage: 100 MG, TWICE DAILY

REACTIONS (3)
  - Dysphonia [Unknown]
  - Pain [Unknown]
  - Intentional product misuse [Unknown]
